FAERS Safety Report 9200021 (Version 1)
Quarter: 2013Q1

REPORT INFORMATION
  Report Type: Spontaneous
  Country: US (occurrence: US)
  Receive Date: 20130329
  Receipt Date: 20130329
  Transmission Date: 20140127
  Serious: Yes (Hospitalization)
  Sender: FDA-Public Use
  Company Number: US-PFIZER INC-2013100555

PATIENT
  Age: 52 Year
  Sex: Male
  Weight: 102.5 kg

DRUGS (13)
  1. AZOR [Suspect]
     Indication: HYPERTENSION
     Dosage: 10/40MG, (QD)
     Route: 048
     Dates: start: 20101130
  2. AZOR [Suspect]
     Dosage: UNK
     Route: 048
  3. AMLODIPINE BESILATE [Suspect]
     Dosage: UNK
  4. CHLORTHALIDONE [Suspect]
     Dosage: UNK
  5. HYDRALAZINE [Suspect]
     Dosage: UNK
     Route: 065
  6. CLONIDINE [Suspect]
     Indication: BLOOD PRESSURE SYSTOLIC
     Dosage: 0.2 MG, 4X/DAY PRN FOR SYSTOLIC BP OVER 180
     Route: 048
  7. CLONIDINE [Suspect]
     Dosage: UNK (PRN)
     Route: 048
  8. CATAPRES [Concomitant]
     Dosage: 0.3 UG, WEEKLY
     Route: 062
  9. LASIX [Concomitant]
     Dosage: 20 MG, 1X/DAY
     Route: 048
  10. LEVOTHYROXINE [Concomitant]
     Dosage: 50 UG, 1X/DAY
     Route: 048
  11. LUNESTA [Concomitant]
     Dosage: 3 MG, AS NEEDED
     Route: 048
  12. RESTORIL [Concomitant]
     Dosage: 15 MG, UNKNOWN (1-2 QHS)
     Route: 048
  13. VIAGRA [Concomitant]
     Dosage: (50 MG,ONE PRN 30 MIN BEFORE SEXUAL ENCOUNTER)
     Route: 048

REACTIONS (5)
  - Blood pressure increased [Unknown]
  - Pain in extremity [Unknown]
  - Back pain [Unknown]
  - Hypoaesthesia [Unknown]
  - Headache [Unknown]
